FAERS Safety Report 23581404 (Version 1)
Quarter: 2024Q1

REPORT INFORMATION
  Report Type: Spontaneous
  Country: JP (occurrence: JP)
  Receive Date: 20240229
  Receipt Date: 20240229
  Transmission Date: 20240410
  Serious: Yes (Hospitalization, Other)
  Sender: FDA-Public Use
  Company Number: JP-SUN PHARMACEUTICAL INDUSTRIES LTD-2024R1-431817

PATIENT
  Age: 20 Year
  Sex: Male
  Weight: 41.5 kg

DRUGS (1)
  1. ACHROMYCIN V [Suspect]
     Active Substance: TETRACYCLINE HYDROCHLORIDE
     Indication: Pityriasis rubra pilaris
     Dosage: 1 DOSAGE FORM, BID
     Route: 048
     Dates: start: 20231205, end: 20231205

REACTIONS (2)
  - Anaphylactic reaction [Recovering/Resolving]
  - Pyrexia [Recovering/Resolving]

NARRATIVE: CASE EVENT DATE: 20231205
